FAERS Safety Report 7375608-4 (Version None)
Quarter: 2011Q1

REPORT INFORMATION
  Report Type: 
  Country: None (occurrence: None)
  Receive Date: 20110325
  Receipt Date: 20110310
  Transmission Date: 20110831
  Serious: No
  Sender: FDA-Public Use
  Company Number: US-BAYER-2011-023376

PATIENT
  Sex: Female
  Weight: 57 kg

DRUGS (1)
  1. ALEVE (CAPLET) [Suspect]
     Indication: PYREXIA
     Dosage: 220 MG, QD, BOTTLE COUNT 24S
     Route: 048
     Dates: start: 20110309, end: 20110310

REACTIONS (1)
  - PYREXIA [None]
